FAERS Safety Report 8134383-6 (Version None)
Quarter: 2012Q1

REPORT INFORMATION
  Report Type: 
  Country: None (occurrence: None)
  Receive Date: 20120103
  Receipt Date: 20111109
  Transmission Date: 20120608
  Serious: No
  Sender: FDA-Public Use
  Company Number: AE-2011-003271

PATIENT
  Age: 58 Year
  Sex: Female
  Weight: 104.3273 kg

DRUGS (4)
  1. INTERFERON [Concomitant]
  2. LISINOPRIL [Concomitant]
  3. COPEGUS [Concomitant]
  4. INCIVEK [Suspect]
     Dosage: 2250 MG (750 MG, 3 IN 1 D), ORAL
     Route: 048
     Dates: start: 20111028

REACTIONS (2)
  - RECTAL HAEMORRHAGE [None]
  - FATIGUE [None]
